FAERS Safety Report 14977951 (Version 2)
Quarter: 2018Q3

REPORT INFORMATION
  Report Type: Spontaneous
  Country: US (occurrence: US)
  Receive Date: 20180606
  Receipt Date: 20180807
  Transmission Date: 20181010
  Serious: No
  Sender: FDA-Public Use
  Company Number: US-PFIZER INC-2018226640

PATIENT
  Age: 67 Year
  Sex: Female
  Weight: 140.59 kg

DRUGS (7)
  1. CARBOPLATIN. [Suspect]
     Active Substance: CARBOPLATIN
     Dosage: 75 MG/M2, CYCLIC (6 CYCLES EVERY 3 WEEKS)
     Dates: start: 20150120, end: 20150505
  2. DOCETAXEL. [Suspect]
     Active Substance: DOCETAXEL
     Indication: BREAST CANCER FEMALE
     Dosage: 75 MG/M2, CYCLIC (6 CYCLES EVERY 3 WEEKS)
     Dates: start: 20150120, end: 20150505
  3. HERCEPTIN [Suspect]
     Active Substance: TRASTUZUMAB
     Dosage: 75 MG/M2, CYCLIC (6 CYCLES EVERY 3 WEEKS)
     Dates: start: 20150120, end: 20150505
  4. TRASTUZUMAB. [Concomitant]
     Active Substance: TRASTUZUMAB
     Dosage: UNK
  5. NEOSAR [Concomitant]
     Active Substance: CYCLOPHOSPHAMIDE
     Indication: CHEMOTHERAPY
     Dosage: UNK
  6. TAXOTERE [Suspect]
     Active Substance: DOCETAXEL
     Indication: BREAST CANCER FEMALE
     Dosage: 75 MG/M2, CYCLIC (6 CYCLES EVERY 3 WEEKS)
     Dates: start: 20150120, end: 20150505
  7. VITAMIN E [Concomitant]
     Active Substance: .ALPHA.-TOCOPHEROL
     Dosage: UNK
     Dates: start: 1981

REACTIONS (5)
  - Hair colour changes [Unknown]
  - Hair disorder [Unknown]
  - Alopecia [Not Recovered/Not Resolved]
  - Hair texture abnormal [Unknown]
  - Madarosis [Not Recovered/Not Resolved]
